FAERS Safety Report 12981581 (Version 1)
Quarter: 2016Q4

REPORT INFORMATION
  Report Type: Spontaneous
  Country: FR (occurrence: FR)
  Receive Date: 20161129
  Receipt Date: 20161129
  Transmission Date: 20170207
  Serious: Yes (Hospitalization, Other)
  Sender: FDA-Public Use
  Company Number: FR-CLINIGEN GROUP PLC/ CLINIGEN HEALTHCARE LTD-E2B_00003415

PATIENT
  Age: 36 Year
  Sex: Female

DRUGS (3)
  1. CARDIOXANE [Suspect]
     Active Substance: DEXRAZOXANE HYDROCHLORIDE
     Indication: PRODUCT USED FOR UNKNOWN INDICATION
     Dosage: 1500 MG, QD
     Route: 042
     Dates: start: 20020426, end: 20020426
  2. CARDIOXANE [Suspect]
     Active Substance: DEXRAZOXANE HYDROCHLORIDE
     Dosage: 1500 MG, QD
     Route: 042
     Dates: start: 20020517, end: 20020517
  3. CARDIOXANE [Suspect]
     Active Substance: DEXRAZOXANE HYDROCHLORIDE
     Dosage: 1500 MG, QD
     Route: 042
     Dates: start: 20020719, end: 20020719

REACTIONS (3)
  - Burning sensation [Recovered/Resolved]
  - Injection site pain [Recovered/Resolved]
  - Dermatitis bullous [Recovered/Resolved]

NARRATIVE: CASE EVENT DATE: 20020426
